FAERS Safety Report 7499996-3 (Version None)
Quarter: 2011Q2

REPORT INFORMATION
  Report Type: 
  Country: None (occurrence: None)
  Receive Date: 20110524
  Receipt Date: 20110518
  Transmission Date: 20111010
  Serious: Yes (Hospitalization, Other)
  Sender: FDA-Public Use
  Company Number: BR-SANOFI-AVENTIS-2011SA031534

PATIENT
  Sex: Male

DRUGS (9)
  1. NOVORAPID [Concomitant]
     Indication: TYPE 2 DIABETES MELLITUS
     Dosage: ACCORDING TO GLYCEMIA
     Route: 058
     Dates: start: 20110101
  2. FUROSEMIDE [Concomitant]
  3. AMLODIPINE [Concomitant]
  4. CAPTOPRIL [Concomitant]
     Indication: BLOOD PRESSURE
  5. ZANIDIP [Concomitant]
  6. ASPIRIN [Concomitant]
     Route: 048
  7. SOLOSTAR [Suspect]
     Indication: TYPE 2 DIABETES MELLITUS
     Route: 058
  8. LANTUS [Suspect]
     Indication: TYPE 2 DIABETES MELLITUS
     Route: 058
  9. VITAMIN E [Concomitant]

REACTIONS (8)
  - SWELLING [None]
  - OSTEOPOROSIS [None]
  - HYPERTENSION [None]
  - SPINAL FRACTURE [None]
  - FEELING ABNORMAL [None]
  - HYPERGLYCAEMIA [None]
  - FALL [None]
  - RENAL FAILURE [None]
